FAERS Safety Report 4714405-2 (Version None)
Quarter: 2005Q3

REPORT INFORMATION
  Report Type: 
  Country: None (occurrence: None)
  Receive Date: 20050712
  Receipt Date: 20050708
  Transmission Date: 20060218
  Serious: Yes (Other)
  Sender: FDA-Public Use
  Company Number: 200413024GDS

PATIENT
  Age: 15 Year
  Sex: Male

DRUGS (2)
  1. CIPROFLOXACIN [Suspect]
     Indication: URINARY TRACT INFECTION
     Dosage: INTRAVENOUS
     Route: 042
  2. CEFEPIME HYDROCHLORIDE [Concomitant]

REACTIONS (1)
  - STATUS EPILEPTICUS [None]
